FAERS Safety Report 19463902 (Version 2)
Quarter: 2021Q3

REPORT INFORMATION
  Report Type: Spontaneous
  Country: US (occurrence: US)
  Receive Date: 20210627
  Receipt Date: 20210825
  Transmission Date: 20211014
  Serious: No
  Sender: FDA-Public Use
  Company Number: US-JNJFOC-20210643965

PATIENT

DRUGS (2)
  1. REACTINE UNSPECIFIED (CETIRIZINE DIHYDROCHLORIDE) [Suspect]
     Active Substance: CETIRIZINE HYDROCHLORIDE
     Indication: MULTIPLE ALLERGIES
     Dosage: 1 PILL
     Route: 048
  2. REACTINE UNSPECIFIED (CETIRIZINE DIHYDROCHLORIDE) [Suspect]
     Active Substance: CETIRIZINE HYDROCHLORIDE
     Dosage: DOUBLE DOSE
     Route: 065

REACTIONS (3)
  - Hypersensitivity [Unknown]
  - Overdose [Unknown]
  - Therapeutic product effect incomplete [Unknown]
